FAERS Safety Report 22198923 (Version 5)
Quarter: 2023Q2

REPORT INFORMATION
  Report Type: Spontaneous
  Country: PL (occurrence: PL)
  Receive Date: 20230411
  Receipt Date: 20230517
  Transmission Date: 20230721
  Serious: Yes (Other)
  Sender: FDA-Public Use
  Company Number: PL-MYLANLABS-2023M1034507

PATIENT
  Age: 38 Year
  Sex: Male

DRUGS (8)
  1. ARIPIPRAZOLE [Suspect]
     Active Substance: ARIPIPRAZOLE
     Indication: Post-traumatic epilepsy
     Dosage: 15 MILLIGRAM, QD, UNK (15 MG)
     Route: 065
  2. ARIPIPRAZOLE [Suspect]
     Active Substance: ARIPIPRAZOLE
     Indication: Psychotic symptom
     Dosage: 30 MILLIGRAM, QD, 30 MILLIGRAM, DAILY
     Route: 065
  3. METFORMIN [Suspect]
     Active Substance: METFORMIN HYDROCHLORIDE
     Indication: Type 2 diabetes mellitus
     Dosage: 1000 MILLIGRAM, BID
     Route: 065
  4. PROPRANOLOL [Suspect]
     Active Substance: PROPRANOLOL HYDROCHLORIDE
     Indication: Psychotic disorder
     Dosage: 20 MILLIGRAM, QD
     Route: 065
  5. CLOZAPINE [Concomitant]
     Active Substance: CLOZAPINE
     Indication: Psychotic disorder
     Dosage: 600 MILLIGRAM, QD
     Route: 065
  6. CLOZAPINE [Concomitant]
     Active Substance: CLOZAPINE
     Indication: Psychotic symptom
     Dosage: 300 MILLIGRAM, QD, 300 MILLIGRAM, DAILY
     Route: 065
  7. VALPROATE [Concomitant]
     Active Substance: VALPROIC ACID
     Indication: Post-traumatic epilepsy
     Dosage: 1500 MILLIGRAM, QD, 1500 MILLIGRAM, DAILY
     Route: 065
  8. VALPROATE [Concomitant]
     Active Substance: VALPROIC ACID
     Indication: Epilepsy

REACTIONS (5)
  - Hallucination, auditory [Unknown]
  - Akathisia [Recovering/Resolving]
  - Drooling [Unknown]
  - Sedation [Recovered/Resolved]
  - Somnolence [Unknown]
